FAERS Safety Report 10464226 (Version 2)
Quarter: 2014Q4

REPORT INFORMATION
  Report Type: Spontaneous
  Country: ES (occurrence: ES)
  Receive Date: 20140919
  Receipt Date: 20141113
  Transmission Date: 20150528
  Serious: Yes (Other)
  Sender: FDA-Public Use
  Company Number: ES-ASPEN PHARMA TRADING LIMITED US-AG-2014-005828

PATIENT
  Age: 77 Year
  Sex: Male

DRUGS (2)
  1. CHLORAMBUCIL [Suspect]
     Active Substance: CHLORAMBUCIL
     Indication: CHRONIC LYMPHOCYTIC LEUKAEMIA
     Route: 048
     Dates: start: 20120509
  2. OBINUTUZUMAB [Suspect]
     Active Substance: OBINUTUZUMAB
     Indication: CHRONIC LYMPHOCYTIC LEUKAEMIA
     Dosage: CYCLE 1, DAYS 1, 8 AND 15, CYCLES 2-6 DAY 1. (1000 MG,1 IN 4 WK)
     Route: 042
     Dates: start: 20120509

REACTIONS (1)
  - Colon adenoma [Unknown]

NARRATIVE: CASE EVENT DATE: 20140616
